FAERS Safety Report 9384380 (Version 1)
Quarter: 2013Q3

REPORT INFORMATION
  Report Type: Spontaneous
  Country: FR (occurrence: FR)
  Receive Date: 20130705
  Receipt Date: 20130705
  Transmission Date: 20140515
  Serious: Yes (Hospitalization)
  Sender: FDA-Public Use
  Company Number: FR-SANOFI-AVENTIS-2013SA066828

PATIENT
  Age: 58 Year
  Sex: Male

DRUGS (3)
  1. DAONIL [Suspect]
     Indication: DIABETES MELLITUS
     Route: 048
     Dates: start: 201303, end: 20130418
  2. ONGLYZA [Suspect]
     Indication: DIABETES MELLITUS
     Route: 048
     Dates: start: 201304, end: 20130418
  3. STAGID [Suspect]
     Indication: DIABETES MELLITUS
     Route: 048
     Dates: start: 201303, end: 20130418

REACTIONS (3)
  - Pancreatitis acute [Recovered/Resolved]
  - Abdominal pain [Recovered/Resolved]
  - Vomiting [Recovered/Resolved]
